FAERS Safety Report 9825662 (Version 1)
Quarter: 2014Q1

REPORT INFORMATION
  Report Type: Spontaneous
  Country: US (occurrence: None)
  Receive Date: 20140115
  Receipt Date: 20140115
  Transmission Date: 20141002
  Serious: Yes (Life-Threatening, Hospitalization)
  Sender: FDA-Public Use
  Company Number: None

PATIENT
  Age: 78 Year
  Sex: Male
  Weight: 81.65 kg

DRUGS (9)
  1. BACTRIM [Suspect]
     Dosage: BY MOUTH
     Dates: start: 20130527, end: 20130602
  2. CARYEDILOL [Concomitant]
  3. LISINOPRIL [Concomitant]
  4. SIMVASTATIN [Concomitant]
  5. ASPIRIN [Concomitant]
  6. VITAMIN C [Concomitant]
  7. CALCIUM + D [Concomitant]
  8. MULTI VITAMIN [Concomitant]
  9. MAGNESIUM [Concomitant]

REACTIONS (1)
  - Body temperature increased [None]
